FAERS Safety Report 4847990-0 (Version None)
Quarter: 2005Q4

REPORT INFORMATION
  Report Type: 
  Country: None (occurrence: None)
  Receive Date: 20051206
  Receipt Date: 20051122
  Transmission Date: 20060501
  Serious: Yes (Death, Life-Threatening, Hospitalization)
  Sender: FDA-Public Use
  Company Number: CLOF-10165

PATIENT
  Age: 70 Year
  Sex: Female

DRUGS (3)
  1. CLOFARABINE [Suspect]
     Indication: ACUTE MYELOID LEUKAEMIA
     Dosage: 30 MG/M2 QD X 5 IV
     Route: 042
     Dates: start: 20051110
  2. CASPOFUNGIN [Concomitant]
  3. ACYCLOVIR [Concomitant]

REACTIONS (5)
  - ATRIAL FIBRILLATION [None]
  - HYPOTENSION [None]
  - NEUTROPENIC SEPSIS [None]
  - RENAL FAILURE ACUTE [None]
  - RESPIRATORY RATE INCREASED [None]
